FAERS Safety Report 11475659 (Version 1)
Quarter: 2015Q3

REPORT INFORMATION
  Report Type: Spontaneous
  Country: FR (occurrence: FR)
  Receive Date: 20150909
  Receipt Date: 20150909
  Transmission Date: 20151125
  Serious: Yes (Hospitalization)
  Sender: FDA-Public Use
  Company Number: FR-UCBSA-2015028254

PATIENT
  Age: 58 Year
  Sex: Female

DRUGS (2)
  1. CIMZIA [Suspect]
     Active Substance: CERTOLIZUMAB PEGOL
     Indication: RHEUMATOID ARTHRITIS
     Dosage: 200 MG, EV 2 WEEKS(QOW)
     Route: 058
     Dates: start: 20141201, end: 20141215
  2. MORPHINE [Concomitant]
     Active Substance: MORPHINE
     Indication: PRODUCT USED FOR UNKNOWN INDICATION
     Dosage: UNK
     Route: 042

REACTIONS (12)
  - General physical health deterioration [Unknown]
  - Paraesthesia [Not Recovered/Not Resolved]
  - Cough [Unknown]
  - Respiratory disorder [Unknown]
  - Chest discomfort [Unknown]
  - Dry mouth [Unknown]
  - Arthralgia [Unknown]
  - Skin exfoliation [Unknown]
  - Hypersensitivity [Recovering/Resolving]
  - Chest pain [Unknown]
  - Chills [Unknown]
  - Rash pruritic [Recovered/Resolved]

NARRATIVE: CASE EVENT DATE: 201412
